FAERS Safety Report 5258860-0 (Version None)
Quarter: 2007Q1

REPORT INFORMATION
  Report Type: 
  Country: None (occurrence: None)
  Receive Date: 20070308
  Receipt Date: 20070228
  Transmission Date: 20070707
  Serious: Yes (Hospitalization)
  Sender: FDA-Public Use
  Company Number: US-ROCHE-451666

PATIENT
  Age: 67 Year
  Sex: Male
  Weight: 56.1 kg

DRUGS (4)
  1. PEGASYS [Suspect]
     Route: 058
     Dates: start: 20060131, end: 20060821
  2. PEGASYS [Suspect]
     Dosage: STRENGTH REPORTED AS 180 MCG/0.5 ML. RESTART OF PEG-INTERFERON ALFA 2A REPORTED AS SOMETIME AFTER 2+
     Route: 058
     Dates: start: 20060929, end: 20061227
  3. COPEGUS [Suspect]
     Route: 048
     Dates: start: 20060131, end: 20060821
  4. COPEGUS [Suspect]
     Dosage: START DATE OF RIBAVIRIN REPORTED AS SOMETIME AFTER 28 SEPTEMBER 2006.
     Route: 048
     Dates: start: 20060929, end: 20061227

REACTIONS (2)
  - ANAEMIA [None]
  - HYPOTENSION [None]
